FAERS Safety Report 12269788 (Version 1)
Quarter: 2016Q2

REPORT INFORMATION
  Report Type: Spontaneous
  Country: US (occurrence: US)
  Receive Date: 20160414
  Receipt Date: 20160414
  Transmission Date: 20160815
  Serious: No
  Sender: FDA-Public Use
  Company Number: US-AMGEN-USASP2016045740

PATIENT
  Age: 66 Year
  Sex: Female

DRUGS (2)
  1. METHOTREXATE [Concomitant]
     Active Substance: METHOTREXATE
     Dosage: UNK
  2. ENBREL [Suspect]
     Active Substance: ETANERCEPT
     Indication: RHEUMATOID ARTHRITIS
     Dosage: 50 MG, QWK
     Route: 065

REACTIONS (12)
  - Cough [Unknown]
  - Hypersensitivity [Not Recovered/Not Resolved]
  - Fall [Unknown]
  - Headache [Unknown]
  - Infection [Unknown]
  - Impaired healing [Unknown]
  - Sinus disorder [Not Recovered/Not Resolved]
  - Skin injury [Unknown]
  - Arthritis [Unknown]
  - Skin ulcer [Unknown]
  - Skin atrophy [Unknown]
  - Upper-airway cough syndrome [Unknown]

NARRATIVE: CASE EVENT DATE: 20160402
